FAERS Safety Report 11249236 (Version 2)
Quarter: 2015Q3

REPORT INFORMATION
  Report Type: Spontaneous
  Country: US (occurrence: US)
  Receive Date: 20150708
  Receipt Date: 20150708
  Transmission Date: 20151125
  Serious: Yes (Other)
  Sender: FDA-Public Use
  Company Number: US-ELI_LILLY_AND_COMPANY-US200902001450

PATIENT
  Age: 73 Year
  Sex: Male
  Weight: 72.6 kg

DRUGS (8)
  1. ALIMTA [Suspect]
     Active Substance: PEMETREXED DISODIUM
     Indication: NON-SMALL CELL LUNG CANCER STAGE IV
     Dates: start: 200810
  2. BILBERRY [Concomitant]
     Active Substance: BILBERRY
  3. MULTIVITAMIN [Concomitant]
     Active Substance: VITAMINS
  4. GEMZAR [Suspect]
     Active Substance: GEMCITABINE HYDROCHLORIDE
     Indication: NON-SMALL CELL LUNG CANCER STAGE IV
     Dosage: 1930 MG, UNK
     Route: 042
     Dates: start: 20090203
  5. VITAMIN C [Concomitant]
     Active Substance: ASCORBIC ACID
  6. TARCEVA [Concomitant]
     Active Substance: ERLOTINIB HYDROCHLORIDE
     Indication: NON-SMALL CELL LUNG CANCER STAGE IV
  7. BABY ASPIRIN [Concomitant]
     Active Substance: ASPIRIN
     Dosage: 81 MG, 2/D
  8. LUTEIN [Concomitant]
     Active Substance: LUTEIN

REACTIONS (8)
  - Infusion site pain [Recovered/Resolved]
  - Malignant neoplasm progression [Unknown]
  - Dizziness [Not Recovered/Not Resolved]
  - Headache [Not Recovered/Not Resolved]
  - Rash [Unknown]
  - Malaise [Not Recovered/Not Resolved]
  - Peripheral swelling [Recovered/Resolved]
  - Nasal congestion [Not Recovered/Not Resolved]

NARRATIVE: CASE EVENT DATE: 20090203
